FAERS Safety Report 8270412-7 (Version None)
Quarter: 2012Q2

REPORT INFORMATION
  Report Type: 
  Country: None (occurrence: None)
  Receive Date: 20120410
  Receipt Date: 20120403
  Transmission Date: 20120825
  Serious: Yes (Disabling)
  Sender: FDA-Public Use
  Company Number: GB-SANOFI-AVENTIS-2012SA023468

PATIENT
  Age: 82 Year
  Sex: Male
  Weight: 69.7 kg

DRUGS (4)
  1. CANDESARTAN CILEXETIL [Concomitant]
     Dates: start: 20111214, end: 20120208
  2. SIMVASTATIN [Suspect]
     Route: 065
  3. DRONEDARONE HCL [Suspect]
     Route: 065
     Dates: start: 20111214
  4. DRONEDARONE HCL [Suspect]
     Dosage: INCREASED DOSE
     Route: 065
     Dates: end: 20120131

REACTIONS (2)
  - MYALGIA [None]
  - PAIN IN EXTREMITY [None]
